FAERS Safety Report 11417164 (Version 1)
Quarter: 2015Q3

REPORT INFORMATION
  Report Type: Spontaneous
  Country: TW (occurrence: TW)
  Receive Date: 20150825
  Receipt Date: 20150825
  Transmission Date: 20151125
  Serious: Yes (Death)
  Sender: FDA-Public Use
  Company Number: TW-BAYER-2015-400283

PATIENT
  Age: 61 Year
  Sex: Male
  Weight: 91 kg

DRUGS (17)
  1. PANTOLOC [Concomitant]
     Active Substance: PANTOPRAZOLE SODIUM
     Dosage: UNK
  2. NOREPINEPHRINE [Concomitant]
     Active Substance: NOREPINEPHRINE\NOREPINEPHRINE BITARTRATE
  3. PROPACETAMOL [Concomitant]
     Active Substance: PROPACETAMOL
  4. PLAVIX [Concomitant]
     Active Substance: CLOPIDOGREL BISULFATE
     Dosage: UNK
  5. PROCAL [Concomitant]
     Active Substance: SODIUM FLUORIDE
     Dosage: UNK
  6. ADALAT [Concomitant]
     Active Substance: NIFEDIPINE
     Dosage: UNK
  7. PLETAAL [Concomitant]
     Active Substance: CILOSTAZOL
     Dosage: UNK
  8. CIPROXIN [Suspect]
     Active Substance: CIPROFLOXACIN
     Indication: GASTROINTESTINAL INFECTION
     Dosage: 200 MG, BID
  9. FUROSEMIDE. [Concomitant]
     Active Substance: FUROSEMIDE
  10. HYDROCORTISONE. [Concomitant]
     Active Substance: HYDROCORTISONE
     Dosage: UNK
  11. CEFPIROME [Concomitant]
     Active Substance: CEFPIROME
     Dosage: UNK
  12. CEFAZOLIN [Concomitant]
     Active Substance: CEFAZOLIN
     Dosage: UNK
  13. ALBUMIN [Concomitant]
     Active Substance: ALBUMIN (HUMAN)
  14. NEPHROSTERIL [AMINO ACIDS NOS] [Concomitant]
  15. FEBUXOSTAT. [Concomitant]
     Active Substance: FEBUXOSTAT
     Dosage: UNK
  16. DIPHENHYDRAMINE. [Concomitant]
     Active Substance: DIPHENHYDRAMINE
     Dosage: UNK
  17. DOPAMINE HYDROCHLORIDE. [Concomitant]
     Active Substance: DOPAMINE HYDROCHLORIDE

REACTIONS (6)
  - Anaphylactic shock [Fatal]
  - Bronchospasm [Fatal]
  - Hypoxia [Fatal]
  - Dyspnoea [Fatal]
  - Pulmonary oedema [Fatal]
  - Pyrexia [None]

NARRATIVE: CASE EVENT DATE: 20150806
